FAERS Safety Report 18075018 (Version 1)
Quarter: 2020Q3

REPORT INFORMATION
  Report Type: Spontaneous
  Country: US (occurrence: US)
  Receive Date: 20200727
  Receipt Date: 20200727
  Transmission Date: 20201103
  Serious: Yes (Hospitalization)
  Sender: FDA-Public Use
  Company Number: US-ABBVIE-19K-163-2986803-00

PATIENT

DRUGS (2)
  1. SYNTHROID [Suspect]
     Active Substance: LEVOTHYROXINE SODIUM
     Route: 048
  2. SYNTHROID [Suspect]
     Active Substance: LEVOTHYROXINE SODIUM
     Indication: PRODUCT USED FOR UNKNOWN INDICATION
     Route: 048

REACTIONS (12)
  - Eyelid ptosis [Unknown]
  - Nervousness [Unknown]
  - Hospitalisation [Unknown]
  - Laboratory test abnormal [Unknown]
  - Weight decreased [Unknown]
  - Skin discolouration [Unknown]
  - Vision blurred [Unknown]
  - Dry skin [Unknown]
  - Confusional state [Unknown]
  - Facial paralysis [Unknown]
  - Depression [Unknown]
  - Palpitations [Unknown]
